FAERS Safety Report 10219944 (Version 3)
Quarter: 2014Q3

REPORT INFORMATION
  Report Type: Spontaneous
  Country: US (occurrence: US)
  Receive Date: 20140605
  Receipt Date: 20140716
  Transmission Date: 20150326
  Serious: No
  Sender: FDA-Public Use
  Company Number: US-TEVA-486338USA

PATIENT
  Age: 44 Year
  Sex: Female
  Weight: 74.46 kg

DRUGS (2)
  1. PARAGARD T380A [Suspect]
     Active Substance: COPPER
     Indication: CONTRACEPTION
     Route: 015
     Dates: start: 2003, end: 20140523
  2. PARAGARD T380A [Suspect]
     Active Substance: COPPER
     Route: 015

REACTIONS (6)
  - Muscle spasms [Unknown]
  - Menorrhagia [Unknown]
  - Expired device used [Recovered/Resolved]
  - Complication of device insertion [Recovered/Resolved]
  - Vulvovaginal discomfort [Unknown]
  - Device expulsion [Recovered/Resolved]

NARRATIVE: CASE EVENT DATE: 2003
